FAERS Safety Report 4965401-1 (Version None)
Quarter: 2006Q2

REPORT INFORMATION
  Report Type: 
  Country: None (occurrence: None)
  Receive Date: 20060406
  Receipt Date: 20050510
  Transmission Date: 20061013
  Serious: Yes (Other)
  Sender: FDA-Public Use
  Company Number: US-MERCK-0505USA01516

PATIENT
  Age: 24 Year
  Sex: Female
  Weight: 75 kg

DRUGS (19)
  1. VIOXX [Suspect]
     Indication: ARTHRITIS
     Route: 048
     Dates: start: 20010101, end: 20021101
  2. VIOXX [Suspect]
     Indication: JOINT SWELLING
     Route: 048
     Dates: start: 20010101, end: 20021101
  3. METHOTREXATE [Concomitant]
     Route: 065
     Dates: start: 20011214, end: 20020301
  4. FOLIC ACID [Concomitant]
     Route: 065
  5. PREVACID [Concomitant]
     Route: 065
  6. ALLEGRA [Concomitant]
     Route: 065
  7. COUMADIN [Concomitant]
     Route: 065
     Dates: start: 19960101
  8. PLAQUENIL [Concomitant]
     Route: 065
  9. GUAIFENEX [Concomitant]
     Route: 065
  10. LEVAQUIN [Concomitant]
     Route: 065
  11. VITAMINS (UNSPECIFIED) [Concomitant]
     Route: 065
  12. CARBAMAZEPINE [Concomitant]
     Route: 065
  13. PREDNISONE [Concomitant]
     Route: 065
  14. IMURAN [Concomitant]
     Route: 065
  15. ULTRACET [Concomitant]
     Route: 065
  16. ZOLOFT [Concomitant]
     Route: 065
  17. DEPO-PROVERA [Concomitant]
     Route: 065
  18. KLONOPIN [Concomitant]
     Route: 065
     Dates: start: 20010101
  19. TEGRETOL [Concomitant]
     Route: 065
     Dates: start: 19950101

REACTIONS (5)
  - BLINDNESS [None]
  - CARDIAC FAILURE CONGESTIVE [None]
  - CEREBROVASCULAR ACCIDENT [None]
  - DEEP VEIN THROMBOSIS [None]
  - THROMBOSIS [None]
